FAERS Safety Report 5242188-9 (Version None)
Quarter: 2007Q1

REPORT INFORMATION
  Report Type: 
  Country: None (occurrence: None)
  Receive Date: 20070213
  Receipt Date: 20070207
  Transmission Date: 20070707
  Serious: Yes (Congenital Anomaly, Other)
  Sender: FDA-Public Use
  Company Number: THQ2007A00094

PATIENT
  Age: 35 Year
  Sex: Female

DRUGS (7)
  1. PROSTAP SR (LEUPROLIDE ACETATE) [Suspect]
     Indication: IN VITRO FERTILISATION
     Dosage: 3.75 MG (3.75 MG, 1 IN 1 M);
  2. PUREGON (FOLLITROPIN BETA) [Concomitant]
  3. PREGNYL [Concomitant]
  4. RAPIFEN (ALFENTANIL HYDROCHLORIDE) [Concomitant]
  5. DIPRIVAN 1% W/V (PROPOFOL) [Concomitant]
  6. IN VITRO FERTILISATION [Concomitant]
  7. CYCLOGEST PESSARIES (PROGESTERONE) [Concomitant]

REACTIONS (4)
  - ABORTION INDUCED [None]
  - DRUG EXPOSURE DURING PREGNANCY [None]
  - PREGNANCY [None]
  - RETAINED PRODUCTS OF CONCEPTION [None]
